FAERS Safety Report 6187682-1 (Version None)
Quarter: 2009Q2

REPORT INFORMATION
  Report Type: 
  Country: None (occurrence: None)
  Receive Date: 20090511
  Receipt Date: 20090429
  Transmission Date: 20091009
  Serious: Yes (Death, Hospitalization)
  Sender: FDA-Public Use
  Company Number: JP-2009-0341

PATIENT
  Age: 80 Year
  Sex: Male

DRUGS (2)
  1. NAVELBINE [Suspect]
     Indication: LUNG SQUAMOUS CELL CARCINOMA STAGE UNSPECIFIED
     Dosage: 35 MG 1 X WK IV
     Route: 042
     Dates: start: 20090119, end: 20090126
  2. DECADRON [Concomitant]

REACTIONS (3)
  - AGRANULOCYTOSIS [None]
  - PNEUMONIA ASPIRATION [None]
  - SEPSIS [None]
